FAERS Safety Report 23615746 (Version 1)
Quarter: 2024Q1

REPORT INFORMATION
  Report Type: Spontaneous
  Country: US (occurrence: US)
  Receive Date: 20240311
  Receipt Date: 20240311
  Transmission Date: 20240410
  Serious: No
  Sender: FDA-Public Use
  Company Number: US-SANDOZ-SDZ2024US025834

PATIENT
  Sex: Male

DRUGS (10)
  1. BUMETANIDE [Suspect]
     Active Substance: BUMETANIDE
     Indication: Product used for unknown indication
     Dosage: 2 MG
     Route: 048
  2. BASAGLAR [Suspect]
     Active Substance: INSULIN GLARGINE
     Indication: Product used for unknown indication
     Dosage: 3 ML(INSULIN 100 UNIT/ML (3 ML)
     Route: 058
  3. CICLOPIROX [Suspect]
     Active Substance: CICLOPIROX\TOCOPHEROL
     Indication: Product used for unknown indication
     Route: 061
  4. CALCIUM ACETATE [Suspect]
     Active Substance: CALCIUM ACETATE
     Indication: Product used for unknown indication
     Dosage: 667 MG
     Route: 048
  5. COSENTYX [Suspect]
     Active Substance: SECUKINUMAB
     Indication: Hidradenitis
     Dosage: 300 MG
     Route: 065
  6. DOXYCYCLINE [Suspect]
     Active Substance: DOXYCYCLINE
     Indication: Product used for unknown indication
     Dosage: 100 MG
     Route: 048
  7. KETOCONAZOLE [Suspect]
     Active Substance: KETOCONAZOLE
     Indication: Product used for unknown indication
     Dosage: 2% TOPICAL SHAMPOO
     Route: 061
  8. LOSARTAN [Suspect]
     Active Substance: LOSARTAN
     Indication: Product used for unknown indication
     Dosage: 50 MG
     Route: 048
  9. NIFEDIPINE [Suspect]
     Active Substance: NIFEDIPINE
     Indication: Product used for unknown indication
     Dosage: 60 MG
     Route: 048
  10. TAMSULOSIN [Suspect]
     Active Substance: TAMSULOSIN
     Indication: Product used for unknown indication
     Dosage: 0.4 MG
     Route: 048

REACTIONS (1)
  - Rebound effect [Unknown]
